FAERS Safety Report 8723088 (Version 2)
Quarter: 2013Q1

REPORT INFORMATION
  Report Type: Spontaneous
  Country: US (occurrence: US)
  Receive Date: 20120814
  Receipt Date: 20130215
  Transmission Date: 20140127
  Serious: No
  Sender: FDA-Public Use
  Company Number: US-009507513-1208USA002117

PATIENT
  Sex: Female

DRUGS (2)
  1. COPPERTONE SPORT CONTINUOUS SPRAY SPF-30 [Suspect]
     Indication: PROPHYLAXIS
     Dosage: UNK, BID
     Route: 061
     Dates: start: 2012
  2. COPPERTONE SPORT CONTINUOUS SPRAY SPF-30 [Suspect]
     Dosage: UNK

REACTIONS (3)
  - Sunburn [Unknown]
  - Skin discolouration [Unknown]
  - Expired drug administered [Unknown]
